FAERS Safety Report 9216614 (Version 1)
Quarter: 2013Q2

REPORT INFORMATION
  Report Type: Spontaneous
  Country: US (occurrence: None)
  Receive Date: 20130403
  Receipt Date: 20130403
  Transmission Date: 20140414
  Serious: Yes (Hospitalization, Other)
  Sender: FDA-Public Use
  Company Number: CLCY20130058

PATIENT
  Age: 35 Year
  Sex: Male
  Weight: 172.28 kg

DRUGS (8)
  1. COLCRYS 0.6 MG [Suspect]
     Indication: GOUT
     Dosage: 1.2 MG, THEN 0.6 MG 1 HR LATER
     Route: 048
     Dates: end: 20130211
  2. COLCRYS 0.6 MG [Suspect]
     Indication: PROPHYLAXIS
     Dosage: 1.2 MG, THEN 0.6 MG 1 HR LATER
     Route: 048
     Dates: end: 20130211
  3. ALLOPURINOL [Concomitant]
  4. EXFORGE [Concomitant]
  5. PREDNISONE [Concomitant]
  6. SERTRALINE [Concomitant]
  7. NORVASC [Concomitant]
  8. DICLOFENAC [Concomitant]

REACTIONS (10)
  - Autoimmune thrombocytopenia [None]
  - Epistaxis [None]
  - Rash [None]
  - Headache [None]
  - Fatigue [None]
  - Depression [None]
  - Sleep disorder [None]
  - Stress [None]
  - Thrombocytopenia [None]
  - Blood pressure increased [None]
